FAERS Safety Report 8835123 (Version 1)
Quarter: 2012Q4

REPORT INFORMATION
  Report Type: 
  Country: US (occurrence: US)
  Receive Date: 20121011
  Receipt Date: 20121011
  Transmission Date: 20130627
  Serious: Yes (Other)
  Sender: FDA-Public Use
  Company Number: US-TEVA-363389USA

PATIENT
  Sex: Female

DRUGS (5)
  1. BUDESONIDE [Suspect]
     Indication: SINUS OPERATION
     Dates: start: 201009, end: 201209
  2. DOXYCYCLINE [Concomitant]
     Dosage: 200 Milligram Daily;
     Route: 048
     Dates: start: 201209
  3. PREDNISONE [Concomitant]
     Dosage: regimen; sev. times in last 2 years
  4. DIOVAN [Concomitant]
     Dosage: 100 Milligram Daily;
     Route: 048
  5. XANAX [Concomitant]
     Dosage: 1 HS

REACTIONS (7)
  - Nervous system disorder [Unknown]
  - Dizziness [Unknown]
  - Burning sensation [Unknown]
  - Hyperacusis [Unknown]
  - Migraine [Unknown]
  - Drug ineffective [Unknown]
  - Wrong technique in drug usage process [Unknown]
